FAERS Safety Report 10235408 (Version 1)
Quarter: 2014Q2

REPORT INFORMATION
  Report Type: Spontaneous
  Country: US (occurrence: US)
  Receive Date: 20140613
  Receipt Date: 20140613
  Transmission Date: 20141212
  Serious: Yes (Other)
  Sender: FDA-Public Use
  Company Number: US-ASTRAZENECA-2014SE40229

PATIENT
  Age: 22 Year
  Sex: Female
  Weight: 47.6 kg

DRUGS (3)
  1. SYMBICORT [Suspect]
     Indication: ASTHMA
     Dosage: ONE PUFF, TWO TIMES DAILY
     Route: 055
     Dates: start: 2007, end: 201303
  2. SYMBICORT [Suspect]
     Indication: ASTHMA
     Dosage: ONE PUFF, TWO TIMES DAILY
     Route: 055
     Dates: start: 201402, end: 201403
  3. POAIR [Concomitant]
     Indication: ASTHMA
     Dosage: PER NEEDED
     Route: 055
     Dates: start: 2007

REACTIONS (11)
  - Pneumonia [Recovered/Resolved]
  - Malaise [Recovered/Resolved]
  - Adverse event [Unknown]
  - Bronchitis [Recovered/Resolved]
  - Vomiting [Not Recovered/Not Resolved]
  - Heart rate increased [Recovered/Resolved]
  - Insomnia [Not Recovered/Not Resolved]
  - Nausea [Recovered/Resolved]
  - Off label use [Recovered/Resolved]
  - Drug dose omission [Unknown]
  - Intentional product misuse [Not Recovered/Not Resolved]
